FAERS Safety Report 18314106 (Version 1)
Quarter: 2020Q3

REPORT INFORMATION
  Report Type: Spontaneous
  Country: CH (occurrence: CH)
  Receive Date: 20200925
  Receipt Date: 20200925
  Transmission Date: 20201103
  Serious: Yes (Death)
  Sender: FDA-Public Use
  Company Number: CH-CELGENEUS-CHE-20200906430

PATIENT

DRUGS (6)
  1. DARZALEX [Concomitant]
     Active Substance: DARATUMUMAB
     Indication: LIGHT CHAIN DISEASE
     Route: 065
     Dates: start: 20200130, end: 20200319
  2. DARZALEX [Concomitant]
     Active Substance: DARATUMUMAB
     Route: 065
     Dates: start: 20200402, end: 20200601
  3. ENDOXAN [Concomitant]
     Active Substance: CYCLOPHOSPHAMIDE
     Indication: PRODUCT USED FOR UNKNOWN INDICATION
     Route: 065
     Dates: start: 20200612, end: 20200813
  4. IMNOVID [Suspect]
     Active Substance: POMALIDOMIDE
     Dosage: 2 MILLIGRAM
     Route: 048
     Dates: start: 20200502, end: 20200611
  5. IMNOVID [Suspect]
     Active Substance: POMALIDOMIDE
     Dosage: 4 MILLIGRAM
     Route: 048
     Dates: start: 20200612, end: 20200813
  6. IMNOVID [Suspect]
     Active Substance: POMALIDOMIDE
     Indication: PLASMA CELL MYELOMA
     Dosage: 2 MILLIGRAM
     Route: 048
     Dates: start: 20200402, end: 20200501

REACTIONS (1)
  - Death [Fatal]

NARRATIVE: CASE EVENT DATE: 20200909
